FAERS Safety Report 9008914 (Version 2)
Quarter: 2013Q4

REPORT INFORMATION
  Report Type: Report from Study
  Country: US (occurrence: US)
  Receive Date: 20130111
  Receipt Date: 20131205
  Transmission Date: 20140711
  Serious: Yes (Death)
  Sender: FDA-Public Use
  Company Number: US-ROCHE-1177373

PATIENT
  Sex: Female
  Weight: 53.57 kg

DRUGS (19)
  1. AVASTIN [Suspect]
     Indication: LUNG NEOPLASM MALIGNANT
     Dosage: FIRST INFUSE 90-120 MIN, THEN 60 MIN, THEN 30 MIN.?IN 0.9 PERCENT SODIUM CHLORIDE SOLUTION, INFUSION
     Route: 042
     Dates: start: 20120814
  2. AVASTIN [Suspect]
     Dosage: FORM STRENGTH: 400 MG/16 ML IN 0.9 PERCENT SODIUM CHLORIDE.?AT A RATE OF 132 ML/HOUR
     Route: 042
     Dates: start: 20120904, end: 20120904
  3. TYLENOL #1 (UNITED STATES) [Concomitant]
     Route: 048
  4. ATIVAN [Concomitant]
     Dosage: 0.5-1 MG IMPLANTED VASCULAR PORT (IVP), PRIOR TO CARBOPLATIN
     Route: 065
     Dates: start: 20120904, end: 20120904
  5. EMEND [Concomitant]
     Route: 065
     Dates: start: 20120904, end: 20120904
  6. EMEND [Concomitant]
     Route: 065
     Dates: start: 20120904, end: 20120905
  7. PACLITAXEL [Concomitant]
     Dosage: FORM STRENGTH: 300 MG/50 ML?IN 5 PERCENT DEXTROSE 250 ML SOLUTION3?INFUSION RATE: 97.777 ML/HOUR
     Route: 042
     Dates: start: 20120904, end: 20120904
  8. PARAPLATIN [Concomitant]
     Dosage: FORM STRENGTH: 600 MG/60 ML, MULTIPLE DOSE VIAL?IN 5 PERCENT DEXTROSE 500 ML INTRAVENOUS SOLUTION.
     Route: 042
     Dates: start: 20120814, end: 20120814
  9. PARAPLATIN [Concomitant]
     Route: 042
     Dates: start: 20120904, end: 20120904
  10. ZOFRAN [Concomitant]
     Dosage: FORM STRENGTH: 40 MG/20 ML, MULTIPLE DOSE VIAL?IN 5 PERCENT DEXTROSE 50 ML SOLUTION?AT RATE OF 125 M
     Route: 042
     Dates: start: 20120814
  11. ZOFRAN [Concomitant]
     Route: 042
     Dates: start: 20120904
  12. BENADRYL (UNITED STATES) [Concomitant]
     Dosage: FORM STRENGTH: 50 MG/ML IN 5 PERCENT DEXTROSE 50 ML SOLUTION.
     Route: 042
     Dates: start: 20120904, end: 20120904
  13. BENADRYL (UNITED STATES) [Concomitant]
     Dosage: FORM STRENGTH: 50 MG/ML IN 5 PERCENT DEXTROSE 50 ML SOLUTION.
     Route: 042
     Dates: start: 20120814, end: 20120814
  14. DEXTROSE [Concomitant]
     Route: 042
     Dates: start: 20120904, end: 20120904
  15. DEXTROSE [Concomitant]
     Route: 042
     Dates: start: 20120808, end: 20120808
  16. PEPCID [Concomitant]
     Dosage: 20 MG/2 ML.
     Route: 042
     Dates: start: 20120814, end: 20120814
  17. PEPCID [Concomitant]
     Dosage: 20 MG/2 ML.
     Route: 042
     Dates: start: 20120904, end: 20120904
  18. DECADRON [Concomitant]
     Dosage: 10 MG/ML IN 5 PERCENT DEXTROSE 50 ML INTRAVENOUS SOLUTION
     Route: 065
     Dates: start: 20120814
  19. DECADRON [Concomitant]
     Dosage: 10 MG/ML IN 5 PERCENT DEXTROSE 50 ML INTRAVENOUS SOLUTION
     Route: 065
     Dates: start: 20120904

REACTIONS (6)
  - Death [Fatal]
  - Depression [Unknown]
  - Musculoskeletal pain [Unknown]
  - Back pain [Unknown]
  - Bone pain [Unknown]
  - Nausea [Unknown]
